FAERS Safety Report 7545307-4 (Version None)
Quarter: 2011Q2

REPORT INFORMATION
  Report Type: 
  Country: None (occurrence: None)
  Receive Date: 20110614
  Receipt Date: 20110531
  Transmission Date: 20111010
  Serious: Yes (Disabling, Other)
  Sender: FDA-Public Use
  Company Number: TR-RANBAXY-2011RR-45262

PATIENT
  Age: 79 Year
  Sex: Female

DRUGS (2)
  1. MEMANTINE [Suspect]
     Indication: DEMENTIA ALZHEIMER'S TYPE
  2. DONEPEZIL HCL [Suspect]
     Indication: DEMENTIA ALZHEIMER'S TYPE
     Dosage: 5 MG, UNK

REACTIONS (4)
  - ALANINE AMINOTRANSFERASE INCREASED [None]
  - SPEECH DISORDER [None]
  - ABASIA [None]
  - ASPARTATE AMINOTRANSFERASE INCREASED [None]
